FAERS Safety Report 7101561-4 (Version None)
Quarter: 2010Q4

REPORT INFORMATION
  Report Type: 
  Country: None (occurrence: None)
  Receive Date: 20101115
  Receipt Date: 20101110
  Transmission Date: 20110411
  Serious: Yes (Hospitalization)
  Sender: FDA-Public Use
  Company Number: FR-PFIZER INC-2010144369

PATIENT
  Age: 65 Year
  Sex: Female

DRUGS (2)
  1. MEDROL [Suspect]
     Route: 048
  2. VELCADE [Suspect]
     Indication: MULTIPLE MYELOMA
     Dosage: 2.3 MG, CYCLIC
     Dates: start: 20100705, end: 20100715

REACTIONS (2)
  - ATAXIA [None]
  - ISCHAEMIC STROKE [None]
